FAERS Safety Report 8942027 (Version 2)
Quarter: 2013Q1

REPORT INFORMATION
  Report Type: Spontaneous
  Country: BR (occurrence: BR)
  Receive Date: 20121130
  Receipt Date: 20130116
  Transmission Date: 20140127
  Serious: Yes (Hospitalization, Disabling)
  Sender: FDA-Public Use
  Company Number: BR-ASTRAZENECA-2012SE89188

PATIENT
  Age: 64 Year
  Sex: Female
  Weight: 69 kg

DRUGS (10)
  1. ATACAND HCT [Suspect]
     Indication: BLOOD PRESSURE ABNORMAL
     Dosage: 16/12.5 MG DAILY
     Route: 048
     Dates: start: 201005, end: 201109
  2. DIOVAN HCT [Suspect]
     Indication: HYPERTENSION
     Dosage: 80/12,5 MG
     Route: 048
     Dates: start: 201109, end: 201211
  3. DIOVAN HCT [Suspect]
     Indication: HYPERTENSION
     Dosage: 160/25 MG
     Route: 048
     Dates: start: 201211
  4. ASPIRIN [Concomitant]
     Indication: HYPERTENSION
     Route: 048
     Dates: start: 201109
  5. ASPIRIN [Concomitant]
     Indication: CEREBROVASCULAR ACCIDENT
     Route: 048
     Dates: start: 201109
  6. STILNOX [Concomitant]
     Indication: INSOMNIA
     Route: 048
  7. REFRESH [Concomitant]
     Indication: DRY EYE
     Route: 031
     Dates: start: 1985
  8. ISOFLAVONE [Concomitant]
     Route: 048
     Dates: start: 200203
  9. GLUCOSAMINE SULFATE [Concomitant]
     Indication: ARTHRITIS
     Route: 048
     Dates: start: 2009
  10. DAFORIN [Concomitant]
     Indication: DEPRESSION
     Route: 048
     Dates: start: 2009

REACTIONS (7)
  - Cerebrovascular accident [Recovered/Resolved]
  - Speech disorder [Recovered/Resolved with Sequelae]
  - Cardiac disorder [Recovered/Resolved]
  - Hypertension [Unknown]
  - Fluid retention [Recovering/Resolving]
  - Blood cholesterol increased [Unknown]
  - Drug ineffective [Unknown]
